FAERS Safety Report 15473206 (Version 4)
Quarter: 2018Q4

REPORT INFORMATION
  Report Type: Spontaneous
  Country: US (occurrence: US)
  Receive Date: 20181008
  Receipt Date: 20181025
  Transmission Date: 20190205
  Serious: No
  Sender: FDA-Public Use
  Company Number: US-PFIZER INC-2018402191

PATIENT
  Age: 61 Year
  Sex: Female

DRUGS (1)
  1. LYRICA [Suspect]
     Active Substance: PREGABALIN
     Indication: NEUROPATHY PERIPHERAL
     Dosage: 150 MG, 3X/DAY
     Dates: start: 201803

REACTIONS (5)
  - Malaise [Unknown]
  - Insomnia [Unknown]
  - Pain in extremity [Unknown]
  - Body height decreased [Unknown]
  - Pain [Not Recovered/Not Resolved]
